FAERS Safety Report 8750017 (Version 2)
Quarter: 2012Q4

REPORT INFORMATION
  Report Type: Spontaneous
  Country: US (occurrence: None)
  Receive Date: 20120808
  Receipt Date: 20120928
  Transmission Date: 20130627
  Serious: Yes (Life-Threatening, Hospitalization, Other)
  Sender: FDA-Public Use
  Company Number: MC201200488

PATIENT
  Age: 52 Year
  Sex: Male
  Weight: 78.4 kg

DRUGS (5)
  1. ANGIOMAX [Suspect]
     Indication: PERCUTANEOUS CORONARY INTERVENTION
     Route: 040
     Dates: start: 20120801, end: 20120801
  2. ANGIOMAX [Suspect]
     Indication: PERCUTANEOUS CORONARY INTERVENTION
     Route: 042
     Dates: start: 20120801
  3. ADENOSINE [Suspect]
     Indication: ARTERIAL THERAPEUTIC PROCEDURE
     Dates: start: 20120801, end: 20120801
  4. UNSPECIFIED INGREDIENT [Suspect]
     Dates: start: 20120801, end: 20120801
  5. OTH. DRUGS FOR OBSTRUC.AIRWAY DISEASES, INHALANTS [Concomitant]

REACTIONS (2)
  - Respiratory depression [None]
  - Hypersensitivity [None]
